FAERS Safety Report 19134621 (Version 1)
Quarter: 2021Q2

REPORT INFORMATION
  Report Type: Spontaneous
  Country: US (occurrence: US)
  Receive Date: 20210414
  Receipt Date: 20210414
  Transmission Date: 20210717
  Serious: No
  Sender: FDA-Public Use
  Company Number: US-BION-008941

PATIENT
  Age: 73 Year
  Sex: Male

DRUGS (2)
  1. ALEVE [Suspect]
     Active Substance: NAPROXEN SODIUM
     Indication: PAIN
     Dosage: 1 LIQUID GEL
     Route: 048
     Dates: start: 2020
  2. ALEVE CAPLETS 50 CT [Concomitant]
     Indication: PAIN
     Dosage: 1 TABLET
     Route: 048
     Dates: start: 2020

REACTIONS (1)
  - Drug ineffective [Not Recovered/Not Resolved]

NARRATIVE: CASE EVENT DATE: 2020
